FAERS Safety Report 9311030 (Version 2)
Quarter: 2013Q3

REPORT INFORMATION
  Report Type: Report from Study
  Country: US (occurrence: US)
  Receive Date: 20130528
  Receipt Date: 20130705
  Transmission Date: 20140515
  Serious: Yes (Hospitalization)
  Sender: FDA-Public Use
  Company Number: US-JNJFOC-20130512473

PATIENT
  Age: 16 Year
  Sex: Male
  Weight: 105.4 kg

DRUGS (3)
  1. REMICADE [Suspect]
     Indication: INFLAMMATORY BOWEL DISEASE
     Route: 042
     Dates: start: 20100519, end: 20111222
  2. METHOTREXATE [Concomitant]
     Route: 065
  3. HUMIRA [Concomitant]
     Route: 065
     Dates: start: 20120111, end: 20121219

REACTIONS (1)
  - Crohn^s disease [Recovered/Resolved with Sequelae]
